FAERS Safety Report 5562470-5 (Version None)
Quarter: 2007Q4

REPORT INFORMATION
  Report Type: 
  Country: None (occurrence: None)
  Receive Date: 20071215
  Receipt Date: 20070123
  Transmission Date: 20080405
  Serious: No
  Sender: FDA-Public Use
  Company Number: US-AMGEN-US208203

PATIENT
  Sex: Female

DRUGS (1)
  1. ENBREL [Suspect]
     Indication: RHEUMATOID ARTHRITIS
     Route: 065
     Dates: start: 20030201

REACTIONS (4)
  - MALAISE [None]
  - MUSCULOSKELETAL CHEST PAIN [None]
  - PAINFUL RESPIRATION [None]
  - PULMONARY CONGESTION [None]
